FAERS Safety Report 10703570 (Version 2)
Quarter: 2015Q1

REPORT INFORMATION
  Report Type: Report from Study
  Country: BR (occurrence: BR)
  Receive Date: 20150112
  Receipt Date: 20150112
  Transmission Date: 20150721
  Serious: Yes (Other)
  Sender: FDA-Public Use
  Company Number: PHHY2014BR093417

PATIENT
  Sex: Male
  Weight: 85 kg

DRUGS (4)
  1. XATRAL [Suspect]
     Active Substance: ALFUZOSIN
     Indication: PROSTATIC DISORDER
     Dosage: 1 DF, QD
     Route: 065
  2. SIMVASTATIN. [Concomitant]
     Active Substance: SIMVASTATIN
     Indication: BLOOD CHOLESTEROL INCREASED
     Dosage: 1 DF, QD
     Route: 065
  3. SANDOSTATIN LAR DEPOT [Suspect]
     Active Substance: OCTREOTIDE ACETATE
     Indication: ACRAL OVERGROWTH
     Dosage: UNK UNK, QMO
     Route: 065
  4. SANDOSTATIN LAR DEPOT [Suspect]
     Active Substance: OCTREOTIDE ACETATE
     Dosage: UNK UKN, QMO
     Route: 065

REACTIONS (8)
  - Drug intolerance [Unknown]
  - Bone disorder [Unknown]
  - Renal cyst [Unknown]
  - Blood glucose abnormal [Unknown]
  - Glucose tolerance impaired [Not Recovered/Not Resolved]
  - Arthropathy [Unknown]
  - Gait disturbance [Unknown]
  - Diarrhoea [Unknown]
